FAERS Safety Report 5309997-9 (Version None)
Quarter: 2007Q2

REPORT INFORMATION
  Report Type: 
  Country: None (occurrence: None)
  Receive Date: 20070427
  Receipt Date: 20070420
  Transmission Date: 20071010
  Serious: Yes (Hospitalization)
  Sender: FDA-Public Use
  Company Number: US-ELI_LILLY_AND_COMPANY-US200704004787

PATIENT
  Age: 76 Year
  Sex: Male

DRUGS (1)
  1. FORTEO [Suspect]
     Indication: OSTEOPOROSIS
     Dosage: UNK, UNK
     Dates: start: 20070415

REACTIONS (4)
  - DEHYDRATION [None]
  - DYSPHAGIA [None]
  - DYSPNOEA [None]
  - LUNG DISORDER [None]
